FAERS Safety Report 8531818-1 (Version None)
Quarter: 2012Q3

REPORT INFORMATION
  Report Type: 
  Country: None (occurrence: None)
  Receive Date: 20120716
  Receipt Date: 20120716
  Transmission Date: 20120928
  Serious: Yes (Other)
  Sender: FDA-Public Use
  Company Number: None

PATIENT
  Sex: Female
  Weight: 81.466 kg

DRUGS (1)
  1. ABILIFY [Suspect]
     Indication: MAJOR DEPRESSION
     Dosage: 10 MG, 8HRS, PO
     Route: 048
     Dates: start: 20120113, end: 20120625

REACTIONS (3)
  - WEIGHT INCREASED [None]
  - TARDIVE DYSKINESIA [None]
  - MOVEMENT DISORDER [None]
